FAERS Safety Report 12482591 (Version 11)
Quarter: 2025Q3

REPORT INFORMATION
  Report Type: Report from Study
  Country: US (occurrence: US)
  Receive Date: 20160620
  Receipt Date: 20250915
  Transmission Date: 20251021
  Serious: Yes (Other)
  Sender: TAKEDA
  Company Number: US-ARIAD PHARMACEUTICALS, INC-2016US006617

PATIENT
  Sex: Male
  Weight: 79 kg

DRUGS (26)
  1. PONATINIB [Suspect]
     Active Substance: PONATINIB
     Indication: Chronic myeloid leukaemia
     Dosage: 15 MILLIGRAM, Q72H
     Dates: start: 20160207
  2. PONATINIB [Suspect]
     Active Substance: PONATINIB
     Dosage: 15 MILLIGRAM, Q72H
     Dates: start: 20200120
  3. PONATINIB [Suspect]
     Active Substance: PONATINIB
     Dosage: 15 MILLIGRAM, QOD
  4. PONATINIB [Suspect]
     Active Substance: PONATINIB
     Dosage: 50 MILLIGRAM, QOD
  5. PONATINIB [Suspect]
     Active Substance: PONATINIB
     Dosage: 15 MILLIGRAM, QD
  6. PONATINIB [Suspect]
     Active Substance: PONATINIB
     Dosage: 30 MILLIGRAM, QOD
  7. PONATINIB [Suspect]
     Active Substance: PONATINIB
  8. PONATINIB [Suspect]
     Active Substance: PONATINIB
     Dosage: 15 MILLIGRAM, QD
  9. PONATINIB [Suspect]
     Active Substance: PONATINIB
     Dosage: 15 MILLIGRAM, QD
  10. PONATINIB [Suspect]
     Active Substance: PONATINIB
     Dosage: 15 MILLIGRAM, QOD
  11. OMEPRAZOLE [Concomitant]
     Active Substance: OMEPRAZOLE
  12. BENZONATATE [Concomitant]
     Active Substance: BENZONATATE
  13. DEXAMETHASONE [Concomitant]
     Active Substance: DEXAMETHASONE
  14. DICYCLOMINE HYDROCHLORIDE [Concomitant]
     Active Substance: DICYCLOMINE HYDROCHLORIDE
  15. HYDROXYUREA [Concomitant]
     Active Substance: HYDROXYUREA
  16. MIRTAZAPINE [Concomitant]
     Active Substance: MIRTAZAPINE
  17. ONDANSETRON HYDROCHLORIDE [Concomitant]
     Active Substance: ONDANSETRON HYDROCHLORIDE
  18. ATORVASTATIN CALCIUM [Concomitant]
     Active Substance: ATORVASTATIN CALCIUM
  19. BRINZOLAMIDE [Concomitant]
     Active Substance: BRINZOLAMIDE
  20. IRON [Concomitant]
     Active Substance: IRON
  21. LIBRAX [Concomitant]
     Active Substance: CHLORDIAZEPOXIDE HYDROCHLORIDE\CLIDINIUM BROMIDE
  22. LOSARTAN POTASSIUM [Concomitant]
     Active Substance: LOSARTAN POTASSIUM
  23. MAGNESIUM [Concomitant]
     Active Substance: MAGNESIUM
  24. TAMSULOSIN HYDROCHLORIDE [Concomitant]
     Active Substance: TAMSULOSIN HYDROCHLORIDE
  25. TRAVOPROST [Concomitant]
     Active Substance: TRAVOPROST
  26. VENTOLIN HFA [Concomitant]
     Active Substance: ALBUTEROL SULFATE

REACTIONS (7)
  - Chronic myeloid leukaemia recurrent [Unknown]
  - Hemihypoaesthesia [Unknown]
  - Chronic myeloid leukaemia [Unknown]
  - Hypoacusis [Unknown]
  - Memory impairment [Unknown]
  - Off label use [Unknown]
  - Product dose omission issue [Unknown]
